FAERS Safety Report 13376598 (Version 1)
Quarter: 2017Q1

REPORT INFORMATION
  Report Type: Spontaneous
  Country: US (occurrence: US)
  Receive Date: 20170327
  Receipt Date: 20170327
  Transmission Date: 20170429
  Serious: Yes (Hospitalization)
  Sender: FDA-Public Use
  Company Number: None

PATIENT
  Age: 44 Year
  Sex: Female
  Weight: 121.5 kg

DRUGS (2)
  1. WOMEN^S DAILY MULTIVITAMIN [Concomitant]
  2. CIPROFLOXACIN. [Suspect]
     Active Substance: CIPROFLOXACIN
     Indication: KIDNEY INFECTION
     Dosage: ?          QUANTITY:1 TABLET(S);?
     Route: 048
     Dates: start: 20170323, end: 20170324

REACTIONS (30)
  - Abdominal distension [None]
  - Photophobia [None]
  - Ocular discomfort [None]
  - Gait disturbance [None]
  - Cough [None]
  - Asthenia [None]
  - Back pain [None]
  - Hypoaesthesia [None]
  - Vomiting [None]
  - Excessive eye blinking [None]
  - Photopsia [None]
  - Malaise [None]
  - Night sweats [None]
  - Tinnitus [None]
  - Abdominal discomfort [None]
  - Chills [None]
  - Blepharospasm [None]
  - Pyrexia [None]
  - Flatulence [None]
  - Decreased appetite [None]
  - Disorientation [None]
  - Nausea [None]
  - Paraesthesia [None]
  - Disturbance in attention [None]
  - Speech disorder [None]
  - Nasopharyngitis [None]
  - Agitation [None]
  - Chest discomfort [None]
  - Balance disorder [None]
  - Burning sensation [None]

NARRATIVE: CASE EVENT DATE: 20170324
